FAERS Safety Report 19752684 (Version 1)
Quarter: 2021Q3

REPORT INFORMATION
  Report Type: Spontaneous
  Country: US (occurrence: US)
  Receive Date: 20210827
  Receipt Date: 20210827
  Transmission Date: 20211014
  Serious: No
  Sender: FDA-Public Use
  Company Number: US-INDIVIOR US-INDV-130417-2021

PATIENT
  Sex: Male

DRUGS (1)
  1. PERSERIS [Suspect]
     Active Substance: RISPERIDONE
     Indication: PRODUCT USED FOR UNKNOWN INDICATION
     Dosage: UNK, QMO, ONE DOSE
     Route: 065

REACTIONS (1)
  - Drug effect less than expected [Unknown]
